FAERS Safety Report 9749411 (Version 1)
Quarter: 2013Q4

REPORT INFORMATION
  Report Type: Spontaneous
  Country: US (occurrence: US)
  Receive Date: 20131212
  Receipt Date: 20131212
  Transmission Date: 20140711
  Serious: No
  Sender: FDA-Public Use
  Company Number: US-BIOGENIDEC-2013BI093292

PATIENT
  Age: 52 Year
  Sex: Female

DRUGS (15)
  1. TECFIDERA [Suspect]
     Indication: MULTIPLE SCLEROSIS
     Route: 048
     Dates: start: 20130912, end: 20130918
  2. TECFIDERA [Suspect]
     Indication: MULTIPLE SCLEROSIS
     Route: 048
     Dates: start: 20130919
  3. NEURONTIN [Concomitant]
  4. ADDERALL [Concomitant]
  5. NEXIUM [Concomitant]
  6. LASIX [Concomitant]
  7. EFFEXOR XR [Concomitant]
  8. CALCIUM [Concomitant]
  9. ABILIFY [Concomitant]
  10. ALBUTEROL [Concomitant]
  11. VITAMIN D DRISDOL [Concomitant]
  12. CLINDAMYCIN [Concomitant]
  13. PROGESTERONE [Concomitant]
  14. ARMOUR THYROID [Concomitant]
  15. TRILEPITAL [Concomitant]

REACTIONS (2)
  - Flushing [Not Recovered/Not Resolved]
  - Nausea [Not Recovered/Not Resolved]
